FAERS Safety Report 10399987 (Version 1)
Quarter: 2014Q3

REPORT INFORMATION
  Report Type: Spontaneous
  Country: US (occurrence: US)
  Receive Date: 20140821
  Receipt Date: 20140821
  Transmission Date: 20150326
  Serious: Yes (Hospitalization)
  Sender: FDA-Public Use
  Company Number: US-B.I. PHARMACEUTICALS,INC./RIDGEFIELD-2014-BI-37728BP

PATIENT
  Sex: Female
  Weight: 82 kg

DRUGS (9)
  1. ASPRIN [Suspect]
     Active Substance: ASPIRIN
     Indication: ATRIAL FIBRILLATION
     Dosage: 81 MG
     Route: 048
     Dates: start: 201112, end: 20111219
  2. PRADAXA [Suspect]
     Active Substance: DABIGATRAN ETEXILATE MESYLATE
     Dosage: 300 MG
     Route: 048
     Dates: start: 20111230, end: 2012
  3. TOPROL XL [Concomitant]
     Active Substance: METOPROLOL SUCCINATE
     Dosage: 25 MG
     Route: 048
  4. LEXAPRO [Concomitant]
     Active Substance: ESCITALOPRAM OXALATE
     Dosage: 10 MG
     Route: 048
  5. MULTIVITAMINS [Concomitant]
     Active Substance: VITAMINS
     Dosage: 1 ANZ
     Route: 048
  6. VASOTEC [Concomitant]
     Active Substance: ENALAPRIL MALEATE
     Dosage: 20 MG
     Route: 048
  7. ZOCOR [Concomitant]
     Active Substance: SIMVASTATIN
     Dosage: 40 MG
     Route: 048
  8. ASPRIN [Suspect]
     Active Substance: ASPIRIN
     Route: 065
     Dates: start: 2012
  9. PRADAXA [Suspect]
     Active Substance: DABIGATRAN ETEXILATE MESYLATE
     Indication: ATRIAL FIBRILLATION
     Dosage: 300 MG
     Route: 048
     Dates: start: 20111107, end: 20111219

REACTIONS (2)
  - Lower gastrointestinal haemorrhage [Unknown]
  - Anaemia [Not Recovered/Not Resolved]
